FAERS Safety Report 8351880-9 (Version None)
Quarter: 2012Q2

REPORT INFORMATION
  Report Type: 
  Country: None (occurrence: None)
  Receive Date: 20120510
  Receipt Date: 20120510
  Transmission Date: 20120825
  Serious: Yes (Other)
  Sender: FDA-Public Use
  Company Number: None

PATIENT
  Sex: Female

DRUGS (1)
  1. OLANZAPINE [Suspect]
     Dosage: 2.5 MG DAILY PO
     Route: 048
     Dates: start: 20120301, end: 20120316

REACTIONS (4)
  - PRODUCT SUBSTITUTION ISSUE [None]
  - NIGHTMARE [None]
  - FATIGUE [None]
  - SOMNOLENCE [None]
